FAERS Safety Report 8582545 (Version 2)
Quarter: 2012Q4

REPORT INFORMATION
  Report Type: 
  Country: US (occurrence: US)
  Receive Date: 20120529
  Receipt Date: 20121107
  Transmission Date: 20130627
  Serious: No
  Sender: FDA-Public Use
  Company Number: US-PFIZER INC-2012127258

PATIENT
  Age: 68 Year
  Sex: Male

DRUGS (10)
  1. SUTENT [Suspect]
     Indication: RENAL CELL CANCER
     Dosage: 50 mg, 1x/day
     Route: 048
     Dates: end: 2012
  2. ATORVASTATIN [Concomitant]
     Dosage: UNK
  3. FOLIC ACID [Concomitant]
     Dosage: UNK
  4. GLIMEPIRIDE [Concomitant]
     Dosage: UNK
  5. LEVOFLOXACIN [Concomitant]
     Dosage: UNK
  6. LISINOPRIL [Concomitant]
     Dosage: UNK
  7. GLYBURIDE [Concomitant]
  8. LEVOTHYROXINE SODIUM [Concomitant]
  9. OXYCODONE-ACETAMINOPHEN [Concomitant]
  10. BUMETANIDE [Concomitant]

REACTIONS (2)
  - Chest discomfort [Not Recovered/Not Resolved]
  - Pruritus [Unknown]
